FAERS Safety Report 7786122-6 (Version None)
Quarter: 2011Q3

REPORT INFORMATION
  Report Type: 
  Country: None (occurrence: None)
  Receive Date: 20110929
  Receipt Date: 20110927
  Transmission Date: 20111222
  Serious: Yes (Hospitalization)
  Sender: FDA-Public Use
  Company Number: US-BAYER-2011-091844

PATIENT
  Age: 62 Year
  Sex: Male
  Weight: 112.3 kg

DRUGS (3)
  1. SARGRAMOSTIM [Suspect]
     Indication: MALIGNANT MELANOMA
     Dosage: 250 ?G, QD
     Route: 058
     Dates: start: 20110720, end: 20110802
  2. ANTIHYPERTENSIVES [Concomitant]
  3. MDX-010 [Suspect]
     Indication: MALIGNANT MELANOMA
     Dosage: 10 MG/KG, ONCE
     Route: 042
     Dates: start: 20110720, end: 20110720

REACTIONS (3)
  - SYNCOPE [None]
  - DEHYDRATION [None]
  - HYPOTENSION [None]
